FAERS Safety Report 7205854-1 (Version None)
Quarter: 2010Q4

REPORT INFORMATION
  Report Type: 
  Country: None (occurrence: None)
  Receive Date: 20101231
  Receipt Date: 20101223
  Transmission Date: 20110411
  Serious: Yes (Other)
  Sender: FDA-Public Use
  Company Number: US-PFIZER INC-2010047536

PATIENT
  Sex: Female
  Weight: 95.2 kg

DRUGS (6)
  1. EFFEXOR XR [Suspect]
     Indication: BIPOLAR DISORDER
     Dosage: 300 MG, DAILY
     Route: 048
  2. EFFEXOR XR [Suspect]
     Indication: SCHIZOPHRENIA
  3. DEXTRIN [Suspect]
     Indication: DIVERTICULUM
     Dosage: UNK
     Dates: start: 20091201
  4. PALIPERIDONE [Suspect]
     Dosage: 9 MG, UNK
     Route: 048
  5. PALIPERIDONE [Suspect]
     Dosage: 12 MG, UNK
  6. GEODON [Concomitant]
     Indication: ANXIETY
     Dosage: UNKNOWN, TWICE DAILY
     Route: 048
     Dates: start: 20100101

REACTIONS (18)
  - ABDOMINAL PAIN [None]
  - ANGER [None]
  - ANXIETY [None]
  - COUGH [None]
  - DIARRHOEA [None]
  - DIVERTICULUM [None]
  - DIZZINESS [None]
  - FATIGUE [None]
  - HYPERSENSITIVITY [None]
  - INCONTINENCE [None]
  - IRRITABILITY [None]
  - LIBIDO DECREASED [None]
  - PRODUCTIVE COUGH [None]
  - STRESS URINARY INCONTINENCE [None]
  - URINE ABNORMALITY [None]
  - URINE OUTPUT DECREASED [None]
  - VULVOVAGINAL PRURITUS [None]
  - WEIGHT DECREASED [None]
